FAERS Safety Report 6980017-3 (Version None)
Quarter: 2010Q3

REPORT INFORMATION
  Report Type: 
  Country: None (occurrence: None)
  Receive Date: 20100914
  Receipt Date: 20100902
  Transmission Date: 20110219
  Serious: Yes (Hospitalization, Other)
  Sender: FDA-Public Use
  Company Number: FR-PFIZER INC-2010101995

PATIENT
  Age: 77 Year
  Sex: Female

DRUGS (5)
  1. AROMASIN [Suspect]
     Indication: BREAST CANCER
     Dosage: 25 MG, 1X/DAY
     Route: 048
     Dates: start: 20100409, end: 20100805
  2. SKENAN [Suspect]
     Dosage: 20 MG, 2X/DAY
     Route: 048
     Dates: start: 20100406, end: 20100801
  3. AREDIA [Suspect]
     Dosage: 1 DF, SINGLE
     Route: 041
     Dates: start: 20100409, end: 20100409
  4. ZOMETA [Suspect]
     Dosage: 4 MG, MONTHLY
     Route: 041
     Dates: start: 20100416, end: 20100727
  5. MORPHINE [Concomitant]
     Dosage: 10 MG, EVERY 4 HRS
     Dates: start: 20100406

REACTIONS (2)
  - CUTANEOUS LUPUS ERYTHEMATOSUS [None]
  - TOXIC SKIN ERUPTION [None]
